FAERS Safety Report 17650798 (Version 1)
Quarter: 2020Q2

REPORT INFORMATION
  Report Type: Report from Study
  Country: CA (occurrence: CA)
  Receive Date: 20200408
  Receipt Date: 20200408
  Transmission Date: 20200713
  Serious: Yes (Hospitalization, Other)
  Sender: FDA-Public Use
  Company Number: CA-JAZZ-2020-CA-004743

PATIENT
  Sex: Female

DRUGS (1)
  1. XYREM [Suspect]
     Active Substance: SODIUM OXYBATE
     Indication: PRODUCT USED FOR UNKNOWN INDICATION
     Dosage: 500 MILLIGRAM/MILLILITRE

REACTIONS (5)
  - Blood pressure increased [Unknown]
  - Product preparation error [Unknown]
  - Feeling drunk [Unknown]
  - Hallucination [Unknown]
  - Myocardial infarction [Unknown]
